FAERS Safety Report 5712779-7 (Version None)
Quarter: 2008Q2

REPORT INFORMATION
  Report Type: 
  Country: None (occurrence: None)
  Receive Date: 20080418
  Receipt Date: 20080407
  Transmission Date: 20081010
  Serious: Yes (Death, Hospitalization)
  Sender: FDA-Public Use
  Company Number: 20084588

PATIENT
  Age: 79 Year
  Sex: Female

DRUGS (5)
  1. LIORESAL [Suspect]
     Indication: MUSCLE SPASTICITY
     Dosage: 50-60 MCG, DAILY, INTRATHECAL
     Route: 037
  2. LASIX [Concomitant]
  3. NORVASC [Concomitant]
  4. BLOPRESS [Concomitant]
  5. PHENOBARBITAL TAB [Concomitant]

REACTIONS (3)
  - APHASIA [None]
  - CEREBRAL HAEMORRHAGE [None]
  - RESPIRATORY DISORDER [None]
